FAERS Safety Report 6101479-X (Version None)
Quarter: 2009Q1

REPORT INFORMATION
  Report Type: 
  Country: None (occurrence: None)
  Receive Date: 20090303
  Receipt Date: 20090303
  Transmission Date: 20090719
  Serious: Yes (Other)
  Sender: FDA-Public Use
  Company Number: None

PATIENT
  Age: 21 Year
  Sex: Female
  Weight: 56.6996 kg

DRUGS (1)
  1. TREXIMET [Suspect]
     Indication: MIGRAINE
     Dosage: TAKE ONE OR 2 PILLS ONCE OR TWICE A DA PO
     Route: 048
     Dates: start: 20081101, end: 20081102

REACTIONS (4)
  - ARTHRALGIA [None]
  - DYSPNOEA [None]
  - FEAR [None]
  - MYALGIA [None]
